FAERS Safety Report 4506860-8 (Version None)
Quarter: 2004Q4

REPORT INFORMATION
  Report Type: 
  Country: None (occurrence: None)
  Receive Date: 20041122
  Receipt Date: 20041117
  Transmission Date: 20050328
  Serious: Yes (Death, Hospitalization, Other)
  Sender: FDA-Public Use
  Company Number: PHBS2004US15503

PATIENT
  Age: 70 Year
  Sex: Female

DRUGS (3)
  1. CYCLOSPORINE [Suspect]
     Indication: RENAL TRANSPLANT
     Dosage: 50 MG, BID
     Route: 065
     Dates: start: 19971001
  2. PREDNISONE [Suspect]
     Indication: RENAL TRANSPLANT
     Dosage: 5 MG, QD
     Route: 065
  3. MYCOPHENOLATE MOFETIL [Suspect]
     Indication: RENAL TRANSPLANT
     Dosage: 750 MG, BID
     Route: 065

REACTIONS (26)
  - ABDOMINAL PAIN LOWER [None]
  - BLOOD SODIUM DECREASED [None]
  - COGWHEEL RIGIDITY [None]
  - COMA [None]
  - CONFUSIONAL STATE [None]
  - DEATH [None]
  - DIABETES MELLITUS [None]
  - ELECTROENCEPHALOGRAM ABNORMAL [None]
  - ENCEPHALITIS VIRAL [None]
  - GRAND MAL CONVULSION [None]
  - HERPES SIMPLEX [None]
  - HYPERREFLEXIA [None]
  - LIFE SUPPORT [None]
  - LUMBAR PUNCTURE ABNORMAL [None]
  - MENTAL STATUS CHANGES [None]
  - MYOCLONUS [None]
  - NAUSEA [None]
  - OSTEOPOROSIS [None]
  - PUPILLARY REFLEX IMPAIRED [None]
  - PUPILS UNEQUAL [None]
  - PYREXIA [None]
  - STATUS EPILEPTICUS [None]
  - STUPOR [None]
  - TRACHEOSTOMY [None]
  - VOMITING [None]
  - WEST NILE VIRAL INFECTION [None]
